FAERS Safety Report 8100002-8 (Version None)
Quarter: 2012Q1

REPORT INFORMATION
  Report Type: 
  Country: None (occurrence: None)
  Receive Date: 20120129
  Receipt Date: 20111129
  Transmission Date: 20120608
  Serious: No
  Sender: FDA-Public Use
  Company Number: US-ABBOTT-11P-163-0878795-00

PATIENT
  Sex: Female
  Weight: 95.34 kg

DRUGS (7)
  1. HUMIRA [Suspect]
     Indication: PSORIATIC ARTHROPATHY
     Dates: start: 20100901
  2. METHOTREXATE [Concomitant]
     Indication: PRODUCT USED FOR UNKNOWN INDICATION
  3. VERAPAMIL [Concomitant]
     Indication: SUPRAVENTRICULAR TACHYCARDIA
  4. ALBUTEROL SULFATE AUTOHALER [Concomitant]
     Indication: PRODUCT USED FOR UNKNOWN INDICATION
  5. PREDNISONE TAB [Concomitant]
     Indication: PRODUCT USED FOR UNKNOWN INDICATION
  6. VERAPAMIL [Concomitant]
     Indication: HYPERTENSION
  7. HUMIRA [Suspect]
     Indication: RHEUMATOID ARTHRITIS
     Dates: start: 20070101, end: 20080101

REACTIONS (4)
  - RED BLOOD CELL SEDIMENTATION RATE INCREASED [None]
  - ALOPECIA [None]
  - ARTHRALGIA [None]
  - OEDEMA PERIPHERAL [None]
